FAERS Safety Report 11152556 (Version 1)
Quarter: 2015Q2

REPORT INFORMATION
  Report Type: Spontaneous
  Country: AU (occurrence: AU)
  Receive Date: 20150601
  Receipt Date: 20150601
  Transmission Date: 20150821
  Serious: Yes (Death, Other)
  Sender: FDA-Public Use
  Company Number: AU-CIPLA LTD.-2015AU04177

PATIENT

DRUGS (2)
  1. CISPLATIN. [Suspect]
     Active Substance: CISPLATIN
     Indication: BILE DUCT CANCER
     Dosage: 20 MG/M2, OVER 1-2 H ON DAYS 1 AND 8 OF EACH 21-DAY CYCLE
     Route: 065
  2. GEMCITABINE [Suspect]
     Active Substance: GEMCITABINE\GEMCITABINE HYDROCHLORIDE
     Indication: BILE DUCT CANCER
     Dosage: 10 MG/M2/MINUTE OVER 1-2 H ON DAYS 1 AND 8 OF EACH 21-DAY CYCLE
     Route: 065

REACTIONS (2)
  - Thrombocytopenia [Fatal]
  - Haematemesis [Fatal]
